FAERS Safety Report 23292495 (Version 2)
Quarter: 2023Q4

REPORT INFORMATION
  Report Type: Spontaneous
  Country: CO (occurrence: CO)
  Receive Date: 20231213
  Receipt Date: 20231222
  Transmission Date: 20240109
  Serious: Yes (Hospitalization, Other)
  Sender: FDA-Public Use
  Company Number: CO-SA-2023SA385297

PATIENT
  Age: 59 Year
  Sex: Female

DRUGS (4)
  1. LEFLUNOMIDE [Suspect]
     Active Substance: LEFLUNOMIDE
     Indication: Rheumatoid arthritis
     Dosage: UNK
  2. METHOTREXATE [Suspect]
     Active Substance: METHOTREXATE
     Indication: Rheumatoid arthritis
     Dosage: UNK
  3. LOSARTAN [Concomitant]
     Active Substance: LOSARTAN
     Indication: Hypertension
     Dosage: UNK
  4. LOSARTAN [Concomitant]
     Active Substance: LOSARTAN

REACTIONS (13)
  - Encephalitis autoimmune [Recovering/Resolving]
  - Hemiparesis [Recovering/Resolving]
  - Facial asymmetry [Recovering/Resolving]
  - Speech disorder [Recovering/Resolving]
  - Facial paralysis [Recovering/Resolving]
  - Aphasia [Recovering/Resolving]
  - Headache [Recovering/Resolving]
  - Anxiety [Recovering/Resolving]
  - Pleocytosis [Recovering/Resolving]
  - Hallucination, auditory [Recovering/Resolving]
  - Insomnia [Recovering/Resolving]
  - Palpitations [Recovering/Resolving]
  - Tremor [Recovering/Resolving]
